FAERS Safety Report 15245150 (Version 1)
Quarter: 2018Q3

REPORT INFORMATION
  Report Type: Spontaneous
  Country: US (occurrence: US)
  Receive Date: 20180806
  Receipt Date: 20180806
  Transmission Date: 20181010
  Serious: No
  Sender: FDA-Public Use
  Company Number: US-BAYER-2018-141192

PATIENT

DRUGS (1)
  1. FINACEA [Suspect]
     Active Substance: AZELAIC ACID
     Dosage: UNK

REACTIONS (3)
  - Rash [None]
  - Device malfunction [None]
  - Unevaluable event [None]
